FAERS Safety Report 6384000-0 (Version None)
Quarter: 2009Q4

REPORT INFORMATION
  Report Type: 
  Country: None (occurrence: None)
  Receive Date: 20091001
  Receipt Date: 20090924
  Transmission Date: 20100525
  Serious: Yes (Other)
  Sender: FDA-Public Use
  Company Number: US-PFIZER INC-2006065177

PATIENT
  Sex: Female

DRUGS (11)
  1. PROVERA [Suspect]
     Indication: HORMONE REPLACEMENT THERAPY
     Route: 048
     Dates: start: 19960101, end: 20020101
  2. PROVERA [Suspect]
     Indication: MENOPAUSE
  3. PREMARIN [Suspect]
     Indication: HORMONE REPLACEMENT THERAPY
     Dosage: UNK
     Dates: start: 19980901, end: 20001001
  4. PREMARIN [Suspect]
     Indication: MENOPAUSE
  5. PREMPRO [Suspect]
     Indication: HORMONE REPLACEMENT THERAPY
     Dosage: UNK
     Dates: start: 19960101, end: 19991201
  6. PREMPRO [Suspect]
     Indication: MENOPAUSE
     Dosage: UNK
     Dates: start: 20001201, end: 20020401
  7. MEDROXYPROGESTERONE ACETATE [Suspect]
     Indication: HORMONE REPLACEMENT THERAPY
     Dosage: UNK
     Dates: start: 20000501, end: 20001101
  8. MEDROXYPROGESTERONE ACETATE [Suspect]
     Indication: MENOPAUSE
  9. NEURONTIN [Concomitant]
     Indication: BACK PAIN
     Dosage: UNK
     Dates: start: 20010101
  10. IBUPROFEN [Concomitant]
     Indication: INFLAMMATION
     Dosage: UNK
  11. OMEPRAZOLE [Concomitant]
     Indication: GASTRIC ULCER
     Dosage: UNK
     Dates: end: 20060101

REACTIONS (1)
  - BREAST CANCER [None]
